FAERS Safety Report 15574405 (Version 1)
Quarter: 2018Q4

REPORT INFORMATION
  Report Type: Report from Study
  Country: NL (occurrence: NL)
  Receive Date: 20181101
  Receipt Date: 20181101
  Transmission Date: 20190205
  Serious: Yes (Hospitalization)
  Sender: FDA-Public Use
  Company Number: PHHY2018NL140775

PATIENT
  Age: 52 Year
  Sex: Female

DRUGS (2)
  1. SANDOSTATIN LAR DEPOT [Suspect]
     Active Substance: OCTREOTIDE ACETATE
     Dosage: 1 DF (30 MG/2 ML), ONCE EVERY 3 WEEKS
     Route: 030
     Dates: start: 20140213
  2. SANDOSTATIN LAR DEPOT [Suspect]
     Active Substance: OCTREOTIDE ACETATE
     Indication: NESIDIOBLASTOSIS
     Dosage: 1 DF (30 MG/2 ML), ONCE EVERY 3 WEEKS
     Route: 030

REACTIONS (4)
  - Diaphragmatic hernia [Recovered/Resolved]
  - Abdominal pain upper [Recovered/Resolved]
  - Diaphragmatic rupture [Recovered/Resolved]
  - Product use in unapproved indication [Unknown]

NARRATIVE: CASE EVENT DATE: 20181008
